FAERS Safety Report 20668188 (Version 2)
Quarter: 2022Q3

REPORT INFORMATION
  Report Type: Report from Study
  Country: JP (occurrence: JP)
  Receive Date: 20220404
  Receipt Date: 20220726
  Transmission Date: 20221026
  Serious: Yes (Hospitalization)
  Sender: FDA-Public Use
  Company Number: JP-NOVARTISPH-NVSJ2022JP005203

PATIENT
  Age: 23 Year
  Sex: Male
  Weight: 44 kg

DRUGS (8)
  1. ILARIS [Suspect]
     Active Substance: CANAKINUMAB
     Indication: Familial mediterranean fever
     Dosage: 150 MG
     Route: 058
     Dates: start: 20190507, end: 20190507
  2. COLCHICINE [Concomitant]
     Active Substance: COLCHICINE
     Indication: Familial mediterranean fever
     Dosage: 1.0 MG
     Route: 048
     Dates: start: 20121031, end: 20130212
  3. COLCHICINE [Concomitant]
     Active Substance: COLCHICINE
     Dosage: 1.5 MG
     Route: 048
     Dates: start: 20130213, end: 20130326
  4. COLCHICINE [Concomitant]
     Active Substance: COLCHICINE
     Dosage: 2.0 MG
     Route: 048
     Dates: start: 20130327, end: 20130527
  5. COLCHICINE [Concomitant]
     Active Substance: COLCHICINE
     Dosage: 1.5 MG
     Route: 048
     Dates: start: 20130528, end: 20190506
  6. COLCHICINE [Concomitant]
     Active Substance: COLCHICINE
     Dosage: 1.5 MG
     Route: 048
     Dates: start: 20190507, end: 20190604
  7. MERCAPTOPURINE [Concomitant]
     Active Substance: MERCAPTOPURINE
     Indication: Familial mediterranean fever
     Dosage: UNK
     Route: 048
  8. PENTASA [Concomitant]
     Active Substance: MESALAMINE
     Indication: Familial mediterranean fever
     Dosage: UNK
     Route: 048

REACTIONS (4)
  - Duodenal stenosis [Recovering/Resolving]
  - Vomiting [Recovering/Resolving]
  - Familial mediterranean fever [Unknown]
  - Condition aggravated [Unknown]

NARRATIVE: CASE EVENT DATE: 20190524
